FAERS Safety Report 5041928-1 (Version None)
Quarter: 2006Q2

REPORT INFORMATION
  Report Type: 
  Country: None (occurrence: None)
  Receive Date: 20060630
  Receipt Date: 20060620
  Transmission Date: 20061013
  Serious: Yes (Hospitalization)
  Sender: FDA-Public Use
  Company Number: 230161M06USA

PATIENT
  Sex: Male

DRUGS (1)
  1. REBIF [Suspect]
     Indication: MULTIPLE SCLEROSIS

REACTIONS (5)
  - BODY TEMPERATURE INCREASED [None]
  - DIFFICULTY IN WALKING [None]
  - FEELING ABNORMAL [None]
  - HEADACHE [None]
  - INJECTION SITE CELLULITIS [None]
